FAERS Safety Report 18582618 (Version 1)
Quarter: 2020Q4

REPORT INFORMATION
  Report Type: Spontaneous
  Country: IN (occurrence: IN)
  Receive Date: 20201205
  Receipt Date: 20201205
  Transmission Date: 20210114
  Serious: Yes (Other)
  Sender: FDA-Public Use
  Company Number: IN-EMCURE PHARMACEUTICALS LTD-2020-EPL-002052

PATIENT
  Age: 28 Year
  Sex: Female

DRUGS (2)
  1. PAUSE-500 [Suspect]
     Active Substance: TRANEXAMIC ACID
     Indication: HEREDITARY ANGIOEDEMA
     Dosage: 1500 MILLIGRAM, PER DAY
  2. STANOZOLOL [Concomitant]
     Active Substance: STANOZOLOL
     Indication: HEREDITARY ANGIOEDEMA
     Dosage: 2 MILLIGRAM, PER DAY

REACTIONS (2)
  - Abortion spontaneous [Unknown]
  - Maternal exposure during pregnancy [Unknown]
